FAERS Safety Report 15103940 (Version 2)
Quarter: 2018Q3

REPORT INFORMATION
  Report Type: Report from Study
  Country: JP (occurrence: JP)
  Receive Date: 20180703
  Receipt Date: 20180824
  Transmission Date: 20181010
  Serious: Yes (Other)
  Sender: FDA-Public Use
  Company Number: JP-GUERBET-JP-20180151

PATIENT
  Age: 41 Year
  Sex: Female

DRUGS (5)
  1. VISIPAQUE [Concomitant]
     Active Substance: IODIXANOL
     Indication: SCLEROTHERAPY
     Route: 065
  2. POLIDOCANOL [Concomitant]
     Active Substance: POLIDOCANOL
     Indication: SCLEROTHERAPY
     Route: 065
  3. LIPIODOL [Suspect]
     Active Substance: ETHIODIZED OIL
     Indication: THERAPEUTIC EMBOLISATION
     Route: 013
  4. HISTOACRYL [Concomitant]
     Active Substance: ENBUCRILATE
     Indication: THERAPEUTIC EMBOLISATION
     Route: 013
  5. DEXTROSE. [Concomitant]
     Active Substance: DEXTROSE
     Indication: THERAPEUTIC EMBOLISATION
     Route: 013

REACTIONS (2)
  - Arterial thrombosis [Unknown]
  - Product use in unapproved indication [Unknown]
